FAERS Safety Report 15456530 (Version 2)
Quarter: 2019Q1

REPORT INFORMATION
  Report Type: Spontaneous
  Country: CN (occurrence: CN)
  Receive Date: 20181002
  Receipt Date: 20190130
  Transmission Date: 20190417
  Serious: Yes (Other)
  Sender: FDA-Public Use
  Company Number: CN-PFIZER INC-2018395085

PATIENT
  Age: 77 Year
  Sex: Female
  Weight: 60 kg

DRUGS (2)
  1. DOXYCYCLINE HYDROCHLORIDE [Suspect]
     Active Substance: DOXYCYCLINE HYDROCHLORIDE
     Indication: LUNG INFECTION
     Dosage: 0.1 G, 2X/DAY
     Route: 048
     Dates: start: 20180719, end: 20180801
  2. TAZOCIN [Suspect]
     Active Substance: PIPERACILLIN SODIUM\TAZOBACTAM SODIUM
     Indication: LUNG INFECTION
     Dosage: 4.5 G, 3X/DAY
     Dates: start: 20180719, end: 20180801

REACTIONS (2)
  - Hypokalaemia [Recovering/Resolving]
  - Platelet count decreased [Recovering/Resolving]

NARRATIVE: CASE EVENT DATE: 20180730
